FAERS Safety Report 21396333 (Version 1)
Quarter: 2022Q3

REPORT INFORMATION
  Report Type: Spontaneous
  Country: CA (occurrence: CA)
  Receive Date: 20220930
  Receipt Date: 20220930
  Transmission Date: 20221027
  Serious: Yes (Disabling)
  Sender: FDA-Public Use
  Company Number: CA-ALLERGAN-2231186US

PATIENT
  Age: 40 Year
  Sex: Male
  Weight: 176.9 kg

DRUGS (1)
  1. SORIATANE [Suspect]
     Active Substance: ACITRETIN
     Indication: Psoriasis
     Dosage: 25 MILLIGRAM DAILY;
     Route: 048

REACTIONS (4)
  - Disturbance in attention [Unknown]
  - Erythema [Unknown]
  - Fatigue [Unknown]
  - Visual impairment [Unknown]
